FAERS Safety Report 7202665-8 (Version None)
Quarter: 2010Q4

REPORT INFORMATION
  Report Type: 
  Country: None (occurrence: None)
  Receive Date: 20101229
  Receipt Date: 20101217
  Transmission Date: 20110411
  Serious: Yes (Death, Other)
  Sender: FDA-Public Use
  Company Number: US-ELI_LILLY_AND_COMPANY-US201012004587

PATIENT
  Sex: Female

DRUGS (14)
  1. FORTEO [Suspect]
     Indication: OSTEOPOROSIS
     Dosage: 20 UG, DAILY (1/D)
     Route: 065
     Dates: start: 20101001
  2. BUMEX [Concomitant]
     Dosage: UNK, DAILY (1/D) MORNING AND NOON
     Route: 065
  3. ULTRAM [Concomitant]
     Dosage: 50 MG, 2 TABLET 3/D AS NEEDED
     Route: 065
  4. MAGNESIUM OXIDE [Concomitant]
     Dosage: 400 MG, 5 DAILY (1/D) 2 IN THE MORNING, 1 AT NOON, 2 IN THE EVENING
     Route: 065
  5. COSAMIN [Concomitant]
     Dosage: UNK, 2/D MORNING AND EVENING
     Route: 065
  6. MULTI-VITAMIN [Concomitant]
     Dosage: UNK, DAILY (1/D)
     Route: 065
  7. LUTEIN [Concomitant]
     Dosage: 20 MG, DAILY (1/D)
     Route: 065
  8. MEGACE [Concomitant]
     Dosage: UNK, DAILY (1/D)
     Route: 065
  9. VITAMIN E [Concomitant]
     Dosage: 400 IU, UNKNOWN
     Route: 065
  10. ASCORBIC ACID [Concomitant]
     Dosage: 500 IU, DAILY (1/D)
     Route: 065
  11. CALTRATE +D [Concomitant]
     Dosage: UNK, MORNING AND EVENING
     Route: 065
  12. POLYETHYLENE GLYCOL [Concomitant]
     Dosage: 17 G, DAILY (1/D)
     Route: 065
  13. LIDODERM [Concomitant]
     Dosage: 5 %, DAILY (1/D) AS NEEDED
     Route: 065
  14. NICODERM [Concomitant]
     Dosage: 1.3 %, AS NEEDED
     Route: 065

REACTIONS (1)
  - MYOCARDIAL INFARCTION [None]
